FAERS Safety Report 6665966-8 (Version None)
Quarter: 2010Q2

REPORT INFORMATION
  Report Type: 
  Country: None (occurrence: None)
  Receive Date: 20100402
  Receipt Date: 20100325
  Transmission Date: 20101027
  Serious: Yes (Hospitalization)
  Sender: FDA-Public Use
  Company Number: GB-PFIZER INC-2010038065

PATIENT
  Sex: Male
  Weight: 87 kg

DRUGS (6)
  1. ATORVASTATIN CALCIUM [Suspect]
     Indication: CARDIAC DISORDER
     Dosage: 20 MG, UNK
  2. DAPTOMYCIN [Suspect]
     Indication: CELLULITIS
     Dosage: 4 MG/KG, UNK
     Dates: start: 20091016, end: 20091024
  3. CITALOPRAM [Concomitant]
  4. NOVORAPID [Concomitant]
     Indication: DIABETES MELLITUS
     Dosage: 6 DF, 2X/DAY
     Route: 058
  5. OMEPRAZOLE [Concomitant]
  6. WARFARIN [Concomitant]

REACTIONS (1)
  - BLOOD POTASSIUM INCREASED [None]
